FAERS Safety Report 19415747 (Version 1)
Quarter: 2021Q2

REPORT INFORMATION
  Report Type: Spontaneous
  Country: US (occurrence: US)
  Receive Date: 20210614
  Receipt Date: 20210614
  Transmission Date: 20210717
  Serious: No
  Sender: FDA-Public Use
  Company Number: None

PATIENT
  Age: 52 Year
  Sex: Female
  Weight: 102.15 kg

DRUGS (14)
  1. LINZESS [Concomitant]
     Active Substance: LINACLOTIDE
  2. TIZANIDINE. [Concomitant]
     Active Substance: TIZANIDINE
  3. TOPIRAMATE. [Concomitant]
     Active Substance: TOPIRAMATE
  4. MULTIVITAMIN [Concomitant]
     Active Substance: VITAMINS
  5. TRADJENTA [Concomitant]
     Active Substance: LINAGLIPTIN
  6. TRINTELLIX [Concomitant]
     Active Substance: VORTIOXETINE HYDROBROMIDE
  7. MEGESTROL [Suspect]
     Active Substance: MEGESTROL
     Route: 048
  8. METFORMIN [Concomitant]
     Active Substance: METFORMIN HYDROCHLORIDE
  9. PRAVASTATIN. [Concomitant]
     Active Substance: PRAVASTATIN
  10. CALCIUM CITRATE [Concomitant]
     Active Substance: CALCIUM CITRATE
  11. TRAMADOL. [Concomitant]
     Active Substance: TRAMADOL
  12. VITAMIN B12 [Concomitant]
     Active Substance: CYANOCOBALAMIN
  13. LEVOTHYROXINE. [Concomitant]
     Active Substance: LEVOTHYROXINE
  14. OMEPRAZOLE. [Concomitant]
     Active Substance: OMEPRAZOLE

REACTIONS (1)
  - Disease progression [None]

NARRATIVE: CASE EVENT DATE: 20210614
